FAERS Safety Report 22398768 (Version 1)
Quarter: 2023Q2

REPORT INFORMATION
  Report Type: Spontaneous
  Country: CA (occurrence: CA)
  Receive Date: 20230602
  Receipt Date: 20230602
  Transmission Date: 20230722
  Serious: Yes (Hospitalization, Other)
  Sender: FDA-Public Use
  Company Number: None

PATIENT
  Age: 90 Year
  Sex: Female

DRUGS (5)
  1. APIXABAN [Suspect]
     Active Substance: APIXABAN
     Indication: Prophylaxis
  2. RIFAMPIN [Suspect]
     Active Substance: RIFAMPIN
     Indication: Staphylococcal infection
  3. WARFARIN [Suspect]
     Active Substance: WARFARIN
     Indication: Prophylaxis
  4. CEPHALEXIN [Concomitant]
     Active Substance: CEPHALEXIN
     Indication: Staphylococcal infection
     Route: 065
  5. APIXABAN [Suspect]
     Active Substance: APIXABAN
     Indication: Prophylaxis

REACTIONS (3)
  - Bullous haemorrhagic dermatosis [Recovered/Resolved]
  - Drug interaction [Recovered/Resolved]
  - Skin necrosis [Recovered/Resolved]
